FAERS Safety Report 7766628-6 (Version None)
Quarter: 2011Q3

REPORT INFORMATION
  Report Type: 
  Country: None (occurrence: None)
  Receive Date: 20110916
  Receipt Date: 20110901
  Transmission Date: 20111222
  Serious: Yes (Other)
  Sender: FDA-Public Use
  Company Number: AUR-APL-2011-04983

PATIENT
  Sex: Male

DRUGS (3)
  1. PRISTIQ [Suspect]
     Indication: DEPRESSION
  2. HYDROCHLOROTHIAZIDE [Suspect]
  3. LOSARTAN POTASSIUM [Suspect]

REACTIONS (2)
  - DRUG INEFFECTIVE [None]
  - BLOOD SODIUM DECREASED [None]
